FAERS Safety Report 6672340-7 (Version None)
Quarter: 2010Q2

REPORT INFORMATION
  Report Type: 
  Country: None (occurrence: None)
  Receive Date: 20100408
  Receipt Date: 20100212
  Transmission Date: 20101027
  Serious: No
  Sender: FDA-Public Use
  Company Number: A0844242A

PATIENT
  Age: 72 Year
  Sex: Female

DRUGS (1)
  1. REQUIP XL [Suspect]
     Indication: PARKINSON'S DISEASE

REACTIONS (1)
  - TREMOR [None]
